FAERS Safety Report 7105121 (Version 4)
Quarter: 2015Q2

REPORT INFORMATION
  Report Type: Report from Study
  Country: US (occurrence: US)
  Receive Date: 20090904
  Receipt Date: 20150521
  Transmission Date: 20150821
  Serious: Yes (Hospitalization)
  Sender: FDA-Public Use
  Company Number: US-BIOGENIDEC-2009BI027886

PATIENT
  Age: 49 Year
  Sex: Male

DRUGS (2)
  1. AVONEX [Suspect]
     Active Substance: INTERFERON BETA-1A
     Indication: MULTIPLE SCLEROSIS
     Route: 030
     Dates: start: 20090320, end: 20150124
  2. AVONEX [Suspect]
     Active Substance: INTERFERON BETA-1A
     Indication: MULTIPLE SCLEROSIS
     Route: 030

REACTIONS (5)
  - Tremor [Recovered/Resolved]
  - Cellulitis [Recovered/Resolved]
  - Feeling cold [Recovered/Resolved]
  - Rubber sensitivity [Not Recovered/Not Resolved]
  - Body temperature increased [Recovered/Resolved]

NARRATIVE: CASE EVENT DATE: 20090808
